FAERS Safety Report 4622912-6 (Version None)
Quarter: 2005Q1

REPORT INFORMATION
  Report Type: 
  Country: None (occurrence: None)
  Receive Date: 20050329
  Receipt Date: 20050316
  Transmission Date: 20050727
  Serious: Yes (Death)
  Sender: FDA-Public Use
  Company Number: TCI2005A01568

PATIENT
  Age: 72 Year
  Sex: Female

DRUGS (5)
  1. ACTOS [Suspect]
     Indication: DIABETES MELLITUS
     Dosage: 15 MG (15 MG, 1 D) PER ORAL
     Route: 048
     Dates: start: 20050205, end: 20050307
  2. TAKEPRON (LANSOPRAZOLE) [Concomitant]
  3. EUGLUCON (GLIBENCLAMIDE) [Concomitant]
  4. PANALDINE (TICLOPIDINE HYDROCHLORIDE) [Concomitant]
  5. MEIACT (CEFDITOREN PIVOXIL) [Concomitant]

REACTIONS (3)
  - CORONARY ARTERY RESTENOSIS [None]
  - DYSPNOEA [None]
  - INJURY ASPHYXIATION [None]
